FAERS Safety Report 13068161 (Version 1)
Quarter: 2016Q4

REPORT INFORMATION
  Report Type: Spontaneous
  Country: US (occurrence: US)
  Receive Date: 20161228
  Receipt Date: 20161228
  Transmission Date: 20170207
  Serious: Yes (Hospitalization, Other)
  Sender: FDA-Public Use
  Company Number: US-JNJFOC-20161223277

PATIENT

DRUGS (1)
  1. ZYTIGA [Suspect]
     Active Substance: ABIRATERONE ACETATE
     Indication: PRODUCT USED FOR UNKNOWN INDICATION
     Route: 048

REACTIONS (7)
  - Asthenia [Unknown]
  - Hip arthroplasty [Unknown]
  - Cardiac disorder [Unknown]
  - Dizziness [Unknown]
  - Vomiting [Unknown]
  - Atrial fibrillation [Unknown]
  - Fall [Unknown]
